FAERS Safety Report 23150522 (Version 2)
Quarter: 2023Q4

REPORT INFORMATION
  Report Type: Report from Study
  Country: US (occurrence: US)
  Receive Date: 20231106
  Receipt Date: 20231115
  Transmission Date: 20240110
  Serious: Yes (Other)
  Sender: FDA-Public Use
  Company Number: US-ABBVIE-5476967

PATIENT
  Age: 52 Year
  Sex: Female

DRUGS (1)
  1. RINVOQ [Suspect]
     Active Substance: UPADACITINIB
     Indication: Rheumatoid arthritis
     Route: 048
     Dates: start: 20220414

REACTIONS (4)
  - Gallbladder operation [Unknown]
  - Blood cholesterol increased [Unknown]
  - Memory impairment [Unknown]
  - Seizure [Unknown]

NARRATIVE: CASE EVENT DATE: 20230701
